FAERS Safety Report 14676266 (Version 1)
Quarter: 2018Q1

REPORT INFORMATION
  Report Type: Spontaneous
  Country: US (occurrence: US)
  Receive Date: 20180323
  Receipt Date: 20180323
  Transmission Date: 20180509
  Serious: Yes (Other)
  Sender: FDA-Public Use
  Company Number: None

PATIENT
  Age: 63 Year
  Sex: Female
  Weight: 56.7 kg

DRUGS (7)
  1. PROLIA [Suspect]
     Active Substance: DENOSUMAB
     Indication: OSTEOPOROSIS
     Dosage: DOSE - FOUR INJECTIONS FROM JAN. 2016 TO OCT. 2017
     Dates: start: 201601, end: 201710
  2. NEURONTIN [Concomitant]
     Active Substance: GABAPENTIN
  3. CITRACEL [Concomitant]
  4. PSYLLIUM [Concomitant]
     Active Substance: PLANTAGO SEED
  5. MIRALAX [Concomitant]
     Active Substance: POLYETHYLENE GLYCOL 3350
  6. ATENOLOL. [Concomitant]
     Active Substance: ATENOLOL
  7. CITRUCCEL [Concomitant]

REACTIONS (3)
  - Eczema [None]
  - Oral discomfort [None]
  - Pain in jaw [None]

NARRATIVE: CASE EVENT DATE: 20180101
